FAERS Safety Report 24858280 (Version 1)
Quarter: 2025Q1

REPORT INFORMATION
  Report Type: Report from Study
  Country: US (occurrence: US)
  Receive Date: 20250117
  Receipt Date: 20250117
  Transmission Date: 20250408
  Serious: No
  Sender: SHIONOGI
  Company Number: US-shionogi-2024000398

PATIENT
  Sex: Male
  Weight: 79.6 kg

DRUGS (2)
  1. CEFIDEROCOL [Suspect]
     Active Substance: CEFIDEROCOL
     Indication: Bacterial infection
     Dosage: 1.5 G, 8 HOUR
     Route: 042
     Dates: start: 20220318, end: 20220322
  2. AMPICILLIN SODIUM\SULBACTAM SODIUM [Concomitant]
     Active Substance: AMPICILLIN SODIUM\SULBACTAM SODIUM
     Indication: Bacterial infection
     Route: 065
     Dates: start: 20220322, end: 20220327

REACTIONS (1)
  - Rash [Recovered/Resolved]

NARRATIVE: CASE EVENT DATE: 20220322
